FAERS Safety Report 20160484 (Version 3)
Quarter: 2022Q1

REPORT INFORMATION
  Report Type: Spontaneous
  Country: US (occurrence: US)
  Receive Date: 20211208
  Receipt Date: 20220324
  Transmission Date: 20220423
  Serious: No
  Sender: FDA-Public Use
  Company Number: US-GSKCCFUS-Case-01236723_AE-72513

PATIENT
  Age: 24 Year
  Sex: Female

DRUGS (1)
  1. BREO ELLIPTA [Suspect]
     Active Substance: FLUTICASONE FUROATE\VILANTEROL TRIFENATATE
     Indication: Product used for unknown indication
     Dosage: UNK, 200/25 MCG

REACTIONS (3)
  - Asthma [Unknown]
  - Dyspnoea [Unknown]
  - Product complaint [Unknown]

NARRATIVE: CASE EVENT DATE: 20211201
